FAERS Safety Report 9204226 (Version 1)
Quarter: 2013Q2

REPORT INFORMATION
  Report Type: Spontaneous
  Country: US (occurrence: None)
  Receive Date: 20130401
  Receipt Date: 20130401
  Transmission Date: 20140414
  Serious: Yes (Hospitalization)
  Sender: FDA-Public Use
  Company Number: None

PATIENT
  Age: 70 Year
  Sex: Male

DRUGS (1)
  1. TRACLEER [Suspect]
     Indication: PAIN
     Route: 048
     Dates: start: 20110302

REACTIONS (2)
  - Hepatic enzyme increased [None]
  - Hepatic function abnormal [None]
